FAERS Safety Report 7359857 (Version 7)
Quarter: 2013Q1

REPORT INFORMATION
  Report Type: Report from Study
  Country: JP (occurrence: JP)
  Receive Date: 20100420
  Receipt Date: 20130221
  Transmission Date: 20140127
  Serious: Yes (Death, Hospitalization, Other)
  Sender: FDA-Public Use
  Company Number: JP-BAYER-201011853BYL

PATIENT
  Age: 77 Year
  Sex: Male
  Weight: 58 kg

DRUGS (16)
  1. NEXAVAR [Suspect]
     Indication: HEPATOCELLULAR CARCINOMA
     Dosage: 400 MG, BID
     Route: 048
     Dates: start: 20100331, end: 20100413
  2. NEXAVAR [Suspect]
     Indication: HEPATOCELLULAR CARCINOMA
     Dosage: 400 MG (DAILY DOSE), , ORAL
     Route: 048
     Dates: start: 20100426, end: 20100516
  3. OLMETEC [Suspect]
     Indication: PRODUCT USED FOR UNKNOWN INDICATION
     Dosage: 40 MG (DAILY DOSE), , ORAL
     Route: 048
     Dates: start: 20100330, end: 20100413
  4. AMLODIN [Concomitant]
     Dosage: 5 MG (DAILY DOSE), , ORAL
     Route: 048
     Dates: end: 20100405
  5. AMLODIN [Concomitant]
     Dosage: 10 MG (DAILY DOSE), , ORAL
     Route: 048
     Dates: start: 20100407, end: 20100521
  6. OMEPRAL [Concomitant]
     Dosage: 20 MG (DAILY DOSE), , UNKNOWN
     Route: 065
     Dates: end: 20100521
  7. VESICARE [Concomitant]
     Dosage: 5 MG (DAILY DOSE), , ORAL
     Route: 048
     Dates: end: 20100521
  8. CARNACULIN [KALLIDINOGENASE] [Concomitant]
     Dosage: 150 MG (DAILY DOSE), , ORAL
     Route: 048
     Dates: end: 20100521
  9. ADONA [Concomitant]
     Dosage: 90 MG (DAILY DOSE), , UNKNOWN
     Route: 065
     Dates: end: 20100521
  10. HYALEIN [Concomitant]
     Route: 031
     Dates: end: 20100521
  11. DICLOD [Concomitant]
     Route: 031
     Dates: end: 20100521
  12. RINDERON-VG [Concomitant]
     Route: 061
     Dates: end: 20100521
  13. MOHRUS [Concomitant]
     Route: 062
     Dates: end: 20100521
  14. VOLTAREN [Concomitant]
     Route: 062
     Dates: end: 20100521
  15. GABAPENTIN [Concomitant]
     Dosage: 300 MG (DAILY DOSE), , ORAL
     Route: 048
     Dates: start: 20100421
  16. MEDICON [Concomitant]
     Dosage: 45 MG (DAILY DOSE), , ORAL
     Route: 048
     Dates: start: 20100407, end: 20100521

REACTIONS (6)
  - Hyperkalaemia [Recovered/Resolved]
  - Blood glucose decreased [Recovered/Resolved]
  - Respiratory failure [Fatal]
  - Hypoglycaemia [Recovered/Resolved]
  - Adrenal insufficiency [Not Recovered/Not Resolved]
  - Pleural effusion [Recovered/Resolved]
